FAERS Safety Report 4894803-7 (Version None)
Quarter: 2006Q1

REPORT INFORMATION
  Report Type: 
  Country: None (occurrence: None)
  Receive Date: 20060126
  Receipt Date: 20060126
  Transmission Date: 20060701
  Serious: No
  Sender: FDA-Public Use
  Company Number: None

PATIENT
  Age: 39 Year
  Sex: Female

DRUGS (2)
  1. MORPHINE SULFATE [Suspect]
     Indication: PAIN
     Dosage: 2MG  Q4H PRN   IV
     Route: 042
     Dates: start: 20060108, end: 20060108
  2. PHENERGAN [Concomitant]

REACTIONS (1)
  - PRURITUS [None]
